FAERS Safety Report 6366588-9 (Version None)
Quarter: 2009Q3

REPORT INFORMATION
  Report Type: 
  Country: None (occurrence: None)
  Receive Date: 20090915
  Receipt Date: 20090902
  Transmission Date: 20100115
  Serious: Yes (Hospitalization)
  Sender: FDA-Public Use
  Company Number: 2009AL005749

PATIENT
  Age: 19 Year
  Sex: Female

DRUGS (5)
  1. CARBAMAZEPINE [Suspect]
     Indication: IMPULSIVE BEHAVIOUR
     Dosage: 400 MG; QD;
  2. CITALOPRAM HYDROBROMIDE [Suspect]
     Indication: IMPULSIVE BEHAVIOUR
     Dosage: 20 MG; QD;
  3. DIANE 35 [Concomitant]
  4. OCTANE ZUKLOPENTIKSOL [Concomitant]
  5. ZUKLOPENTIKSOL [Concomitant]

REACTIONS (35)
  - AGGRESSION [None]
  - APHTHOUS STOMATITIS [None]
  - ASTHENIA [None]
  - BLOOD AMYLASE INCREASED [None]
  - BLOOD UREA INCREASED [None]
  - CONJUNCTIVAL HYPERAEMIA [None]
  - COUGH [None]
  - CYANOSIS [None]
  - DRUG HYPERSENSITIVITY [None]
  - DYSPHORIA [None]
  - EYE PRURITUS [None]
  - EYELID OEDEMA [None]
  - FACE OEDEMA [None]
  - FLUSHING [None]
  - GENERAL PHYSICAL HEALTH DETERIORATION [None]
  - HALLUCINATION, AUDITORY [None]
  - HEADACHE [None]
  - LACRIMATION INCREASED [None]
  - LIP EROSION [None]
  - LYMPHOCYTE PERCENTAGE DECREASED [None]
  - MEASLES [None]
  - MONOCYTE PERCENTAGE INCREASED [None]
  - NO THERAPEUTIC RESPONSE [None]
  - OROPHARYNGEAL PAIN [None]
  - PAROTID GLAND ENLARGEMENT [None]
  - PHARYNGEAL INFLAMMATION [None]
  - PHOTOPHOBIA [None]
  - PSYCHOMOTOR HYPERACTIVITY [None]
  - SELF INJURIOUS BEHAVIOUR [None]
  - SKIN DISCOLOURATION [None]
  - SKIN HYPERPIGMENTATION [None]
  - SUICIDAL IDEATION [None]
  - TONSILLAR HYPERTROPHY [None]
  - TOXIC SKIN ERUPTION [None]
  - URINE AMYLASE INCREASED [None]
